FAERS Safety Report 7274108-X (Version None)
Quarter: 2011Q1

REPORT INFORMATION
  Report Type: 
  Country: None (occurrence: None)
  Receive Date: 20110204
  Receipt Date: 20110128
  Transmission Date: 20110831
  Serious: Yes (Hospitalization)
  Sender: FDA-Public Use
  Company Number: US-BIOGENIDEC-2011BI001374

PATIENT
  Age: 62 Year
  Sex: Male

DRUGS (3)
  1. AVONEX [Suspect]
     Indication: MULTIPLE SCLEROSIS
     Route: 030
     Dates: start: 20080912
  2. AVONEX [Suspect]
     Route: 030
     Dates: start: 20070620, end: 20080411
  3. AVONEX [Suspect]
     Route: 030
     Dates: start: 19960701, end: 20060901

REACTIONS (1)
  - THROMBOSIS [None]
